FAERS Safety Report 16871432 (Version 1)
Quarter: 2019Q4

REPORT INFORMATION
  Report Type: Spontaneous
  Country: US (occurrence: US)
  Receive Date: 20190930
  Receipt Date: 20190930
  Transmission Date: 20200122
  Serious: Yes (Hospitalization)
  Sender: FDA-Public Use
  Company Number: None

PATIENT
  Age: 36 Year
  Weight: 111 kg

DRUGS (1)
  1. RISPERDAL CONSTA [Suspect]
     Active Substance: RISPERIDONE
     Indication: SCHIZOPHRENIA
     Route: 030
     Dates: start: 20190914, end: 20190927

REACTIONS (4)
  - Pyrexia [None]
  - Injection site swelling [None]
  - White blood cell count increased [None]
  - Injection site pain [None]

NARRATIVE: CASE EVENT DATE: 20190927
